FAERS Safety Report 18426608 (Version 2)
Quarter: 2020Q4

REPORT INFORMATION
  Report Type: Spontaneous
  Country: US (occurrence: US)
  Receive Date: 20201026
  Receipt Date: 20201029
  Transmission Date: 20210114
  Serious: No
  Sender: FDA-Public Use
  Company Number: US-MYLANLABS-2020M1089275

PATIENT
  Sex: Female
  Weight: 86.18 kg

DRUGS (1)
  1. EPINEPHRINE. [Suspect]
     Active Substance: EPINEPHRINE
     Indication: FUNGAL INFECTION
     Dosage: 0.3 MILLIGRAM
     Route: 065

REACTIONS (1)
  - Off label use [Unknown]
